FAERS Safety Report 5735529-7 (Version None)
Quarter: 2008Q2

REPORT INFORMATION
  Report Type: 
  Country: None (occurrence: None)
  Receive Date: 20080508
  Receipt Date: 20071012
  Transmission Date: 20081010
  Serious: Yes (Hospitalization)
  Sender: FDA-Public Use
  Company Number: 2007RR-10719

PATIENT
  Age: 24 Month
  Sex: Female

DRUGS (1)
  1. ACETAMINOPHEN/PSEUDOEPHEDRINE HCI/DEXTROMETHORPHAN) UNKNOWN [Suspect]

REACTIONS (6)
  - ACCIDENTAL DRUG INTAKE BY CHILD [None]
  - ATAXIA [None]
  - CONVULSION [None]
  - DRUG SCREEN FALSE POSITIVE [None]
  - DRUG TOXICITY [None]
  - PUPIL FIXED [None]
